FAERS Safety Report 4842988-0 (Version None)
Quarter: 2005Q4

REPORT INFORMATION
  Report Type: 
  Country: None (occurrence: None)
  Receive Date: 20051201
  Receipt Date: 20051122
  Transmission Date: 20060501
  Serious: Yes (Hospitalization)
  Sender: FDA-Public Use
  Company Number: FR-ROCHE-425739

PATIENT
  Age: 32 Year
  Sex: Female

DRUGS (11)
  1. RIVOTRIL [Suspect]
     Indication: DRUG USE FOR UNKNOWN INDICATION
     Route: 048
     Dates: start: 20050912, end: 20050921
  2. APROVEL [Suspect]
     Indication: DRUG USE FOR UNKNOWN INDICATION
     Route: 048
     Dates: start: 20050901, end: 20050921
  3. NEURONTIN [Suspect]
     Indication: DRUG USE FOR UNKNOWN INDICATION
     Route: 048
     Dates: start: 20050912, end: 20050921
  4. PREVISCAN [Suspect]
     Indication: DRUG USE FOR UNKNOWN INDICATION
     Route: 048
     Dates: start: 20050913, end: 20050921
  5. ACUPAN [Suspect]
     Indication: DRUG USE FOR UNKNOWN INDICATION
     Route: 042
     Dates: start: 20050912, end: 20050921
  6. LUTERAN [Concomitant]
     Dosage: TREATMENT DURATION WAS 5 MONTHS.
  7. AMLOR [Concomitant]
     Dosage: TREATMENT DURATION: SEVEN MONTHS
  8. HYZAAR [Concomitant]
     Dates: end: 20050715
  9. EFFERALGAN CODEINE [Concomitant]
     Dosage: TDD REPORTED AS { 3G A DAY.
     Dates: end: 20051119
  10. SEVREDOL [Concomitant]
     Dates: start: 20050919
  11. HEPARIN [Concomitant]
     Dosage: PREVISCAN WAS REPLACED BY A LOW MOLECULAR WEIGHT HEPARIN.

REACTIONS (7)
  - ALANINE AMINOTRANSFERASE INCREASED [None]
  - ASPARTATE AMINOTRANSFERASE INCREASED [None]
  - BLOOD ALKALINE PHOSPHATASE INCREASED [None]
  - EOSINOPHIL COUNT INCREASED [None]
  - GAMMA-GLUTAMYLTRANSFERASE INCREASED [None]
  - HEPATIC ENZYME INCREASED [None]
  - LIVER DISORDER [None]
